FAERS Safety Report 4647805-X (Version None)
Quarter: 2005Q2

REPORT INFORMATION
  Report Type: 
  Country: None (occurrence: None)
  Receive Date: 20050426
  Receipt Date: 20050413
  Transmission Date: 20051028
  Serious: Yes (Hospitalization)
  Sender: FDA-Public Use
  Company Number: MK200504-0176-1

PATIENT
  Age: 79 Year
  Sex: Female

DRUGS (1)
  1. BAROSPERSE ENEMA KT 454GM/16OZ BARIUM SULFATE [Suspect]
     Indication: BARIUM ENEMA
     Dosage: ONE TIME, PR
     Route: 054

REACTIONS (9)
  - BLOOD FIBRINOGEN INCREASED [None]
  - COLD SWEAT [None]
  - IATROGENIC INJURY [None]
  - INCORRECT ROUTE OF DRUG ADMINISTRATION [None]
  - LEUKOCYTOSIS [None]
  - MICROCYTOSIS [None]
  - PALLOR [None]
  - POST PROCEDURAL COMPLICATION [None]
  - PULMONARY EMBOLISM [None]
